FAERS Safety Report 5470681-2 (Version None)
Quarter: 2007Q3

REPORT INFORMATION
  Report Type: 
  Country: None (occurrence: None)
  Receive Date: 20070925
  Receipt Date: 20070829
  Transmission Date: 20080115
  Serious: Yes (Hospitalization)
  Sender: FDA-Public Use
  Company Number: 6037887

PATIENT
  Age: 72 Year
  Sex: Female

DRUGS (3)
  1. SERTRALINE [Suspect]
     Indication: DEPRESSION
     Dosage: 100 MG
     Route: 048
     Dates: start: 20070518, end: 20070702
  2. ADALAT [Concomitant]
  3. TESTOSTERONE [Concomitant]

REACTIONS (1)
  - EPISTAXIS [None]
